FAERS Safety Report 6580122-X (Version None)
Quarter: 2010Q1

REPORT INFORMATION
  Report Type: 
  Country: None (occurrence: None)
  Receive Date: 20100212
  Receipt Date: 20100208
  Transmission Date: 20100710
  Serious: Yes (Death, Hospitalization)
  Sender: FDA-Public Use
  Company Number: FR-PFIZER INC-2009250948

PATIENT
  Age: 42 Year
  Sex: Male

DRUGS (9)
  1. EPIRUBICIN HYDROCHLORIDE [Suspect]
     Indication: GASTRIC CANCER
     Dosage: 80 MG/M2, 160 MG, CYCLIC
     Route: 042
     Dates: start: 20061102, end: 20061123
  2. CISPLATIN [Suspect]
     Indication: GASTRIC CANCER
     Dosage: 95 MG/M2, 190 MG, CYCLIC
     Route: 042
     Dates: start: 20061102, end: 20061123
  3. XELODA [Suspect]
     Indication: GASTRIC CANCER
     Dosage: 3300 MG
     Route: 048
     Dates: start: 20061102, end: 20061123
  4. XELODA [Suspect]
     Dosage: 3000 MG
     Route: 048
     Dates: start: 20061123, end: 20061218
  5. TRANXENE [Suspect]
     Indication: ANXIOLYTIC THERAPY
     Dosage: UNK
     Route: 048
     Dates: end: 20061213
  6. HALDOL [Concomitant]
     Indication: NAUSEA
     Dosage: UNK
     Route: 048
     Dates: end: 20061214
  7. ACTISKENAN [Concomitant]
     Indication: PAIN
     Dosage: 15 MG, EVERY 4 HRS, TDD 90 MG
     Route: 048
     Dates: end: 20061217
  8. NEXIUM [Concomitant]
     Indication: GASTRIC DISORDER
     Dosage: 20 MG
     Route: 048
     Dates: end: 20061219
  9. DURAGESIC-100 [Concomitant]
     Indication: PAIN
     Dosage: 75 UG/H
     Route: 062
     Dates: end: 20061214

REACTIONS (2)
  - COMA [None]
  - GENERAL PHYSICAL HEALTH DETERIORATION [None]
